FAERS Safety Report 20047943 (Version 2)
Quarter: 2021Q4

REPORT INFORMATION
  Report Type: Report from Study
  Country: MX (occurrence: MX)
  Receive Date: 20211109
  Receipt Date: 20211117
  Transmission Date: 20220303
  Serious: Yes (Disabling)
  Sender: FDA-Public Use
  Company Number: MX-NOVARTISPH-NVSC2021MX255615

PATIENT
  Age: 32 Year
  Sex: Female
  Weight: 80 kg

DRUGS (6)
  1. GILENYA [Suspect]
     Active Substance: FINGOLIMOD HYDROCHLORIDE
     Indication: Multiple sclerosis
     Dosage: 0.5 MG, QD
     Route: 048
     Dates: start: 202109
  2. PREDNISONE [Concomitant]
     Active Substance: PREDNISONE
     Indication: Multiple sclerosis
     Dosage: 1 DF, QD
     Route: 048
     Dates: start: 202107, end: 202109
  3. CHLORPHENIRAMINE MALEATE [Concomitant]
     Active Substance: CHLORPHENIRAMINE MALEATE
     Indication: Rhinitis allergic
     Dosage: 1 DF, EVERY 8 HOURS WHEN NECESSARY
     Route: 048
  4. LORATADINE [Concomitant]
     Active Substance: LORATADINE
     Indication: Rhinitis allergic
     Dosage: 1 DF, EVERY 8 HOURS WHEN NECESSARY
     Route: 048
  5. ALBUTEROL [Concomitant]
     Active Substance: ALBUTEROL
     Indication: Asthma
     Dosage: 1 DF,WHEN NECESSARY
     Route: 055
     Dates: start: 2011
  6. DEXAMETHASONE [Concomitant]
     Active Substance: DEXAMETHASONE
     Indication: Asthma
     Dosage: 1 DF, EVERY 24 HOURS WHEN NECESSARY
     Route: 030
     Dates: start: 2011

REACTIONS (1)
  - Jaw disorder [Recovering/Resolving]

NARRATIVE: CASE EVENT DATE: 20211006
